FAERS Safety Report 16867315 (Version 1)
Quarter: 2019Q3

REPORT INFORMATION
  Report Type: Spontaneous
  Country: US (occurrence: US)
  Receive Date: 20190806
  Receipt Date: 20190806
  Transmission Date: 20191005
  Serious: No
  Sender: FDA-Public Use
  Company Number: None

PATIENT
  Sex: Female

DRUGS (1)
  1. XELJANZ XR [Suspect]
     Active Substance: TOFACITINIB CITRATE
     Indication: OSTEOPOROSIS
     Route: 048
     Dates: start: 20190116

REACTIONS (5)
  - Memory impairment [None]
  - Muscular weakness [None]
  - Emotional disorder [None]
  - Oedema peripheral [None]
  - Urticaria [None]
